FAERS Safety Report 15461616 (Version 1)
Quarter: 2018Q4

REPORT INFORMATION
  Report Type: Spontaneous
  Country: JP (occurrence: JP)
  Receive Date: 20181003
  Receipt Date: 20181003
  Transmission Date: 20190204
  Serious: Yes (Hospitalization)
  Sender: FDA-Public Use
  Company Number: PHHY2018JP110602

PATIENT
  Age: 35 Year
  Sex: Female

DRUGS (1)
  1. MEDROXYPROGESTERONE ACETATE. [Suspect]
     Active Substance: MEDROXYPROGESTERONE ACETATE
     Indication: INFERTILITY
     Route: 065

REACTIONS (4)
  - Maternal exposure during pregnancy [Unknown]
  - Preterm premature rupture of membranes [Recovered/Resolved]
  - Placenta accreta [Unknown]
  - Product use in unapproved indication [Unknown]
